FAERS Safety Report 7610237-6 (Version None)
Quarter: 2011Q3

REPORT INFORMATION
  Report Type: 
  Country: None (occurrence: None)
  Receive Date: 20110706
  Receipt Date: 20110628
  Transmission Date: 20111222
  Serious: Yes (Other)
  Sender: FDA-Public Use
  Company Number: 2011SP030126

PATIENT
  Age: 54 Year
  Sex: Female

DRUGS (11)
  1. OREGANO OIL [Concomitant]
  2. GINKO BILOBA [Concomitant]
  3. VITAMIN B COMPLEX CAP [Concomitant]
  4. MULTI-VITAMINS [Concomitant]
  5. TUMERIC [Concomitant]
  6. NASONEX [Suspect]
     Indication: MULTIPLE ALLERGIES
  7. VINPOCETINE [Concomitant]
  8. CHOLINE [Concomitant]
  9. INOSITOL /00522701/ [Concomitant]
  10. TYROSINE [Concomitant]
  11. BROMELAIN [Concomitant]

REACTIONS (3)
  - VISUAL IMPAIRMENT [None]
  - PANIC ATTACK [None]
  - DYSPNOEA [None]
